FAERS Safety Report 9001718 (Version 2)
Quarter: 2013Q2

REPORT INFORMATION
  Report Type: Spontaneous
  Country: US (occurrence: US)
  Receive Date: 20130107
  Receipt Date: 20130404
  Transmission Date: 20140414
  Serious: No
  Sender: FDA-Public Use
  Company Number: US-ASTELLAS-2012US011004

PATIENT
  Age: 69 Year
  Sex: Male

DRUGS (5)
  1. MYRBETRIQ [Suspect]
     Indication: HYPERTONIC BLADDER
     Dosage: 25 MG, UID/QD
     Dates: start: 20121028
  2. MYRBETRIQ [Suspect]
     Dosage: 50 MG/DAY, UID/QD
     Route: 048
  3. PROTONIX [Concomitant]
     Indication: PRODUCT USED FOR UNKNOWN INDICATION
     Dosage: UNK
     Route: 065
  4. RANITIDINE [Concomitant]
     Indication: PRODUCT USED FOR UNKNOWN INDICATION
     Dosage: UNK
     Route: 065
  5. TOVIAZ [Concomitant]
     Indication: AUTOMATIC BLADDER
     Dosage: UNK
     Route: 065
     Dates: end: 20121031

REACTIONS (8)
  - Drug ineffective [Recovered/Resolved]
  - Somnolence [Recovered/Resolved]
  - Micturition urgency [Not Recovered/Not Resolved]
  - Nocturia [Unknown]
  - Frequent bowel movements [Unknown]
  - Diarrhoea [Not Recovered/Not Resolved]
  - Dyspepsia [Not Recovered/Not Resolved]
  - Abdominal pain [Not Recovered/Not Resolved]
